FAERS Safety Report 17781599 (Version 3)
Quarter: 2021Q1

REPORT INFORMATION
  Report Type: Report from Study
  Country: US (occurrence: US)
  Receive Date: 20200513
  Receipt Date: 20210108
  Transmission Date: 20210419
  Serious: No
  Sender: FDA-Public Use
  Company Number: US-ACADIA PHARMACEUTICALS INC.-ACA-2019-014610

PATIENT
  Sex: Male
  Weight: 67 kg

DRUGS (3)
  1. NUPLAZID [Suspect]
     Active Substance: PIMAVANSERIN TARTRATE
     Indication: PARKINSON^S DISEASE PSYCHOSIS
     Dosage: 34 MG, QD
     Route: 048
     Dates: start: 2019
  2. NUPLAZID [Suspect]
     Active Substance: PIMAVANSERIN TARTRATE
     Indication: HALLUCINATION
     Dosage: 34 MG, QD
     Route: 048
     Dates: start: 202001
  3. NUPLAZID [Suspect]
     Active Substance: PIMAVANSERIN TARTRATE
     Indication: DELUSION
     Dosage: 34 MG, EVERY OTHER DAY
     Route: 048

REACTIONS (6)
  - Inappropriate schedule of product administration [Unknown]
  - Underdose [Unknown]
  - Hallucination [Not Recovered/Not Resolved]
  - Intentional dose omission [Unknown]
  - Hallucination, visual [Unknown]
  - Drug ineffective [Unknown]
